FAERS Safety Report 11990865 (Version 1)
Quarter: 2016Q1

REPORT INFORMATION
  Report Type: Spontaneous
  Country: HR (occurrence: HR)
  Receive Date: 20160202
  Receipt Date: 20160202
  Transmission Date: 20160526
  Serious: Yes (Hospitalization)
  Sender: FDA-Public Use
  Company Number: HR-TEVA-628188ACC

PATIENT
  Age: 56 Year
  Sex: Female
  Weight: 55 kg

DRUGS (3)
  1. RAMIPRIL H FARMAL 5 MG/25 MG TABLETE [Concomitant]
     Indication: HYPERTENSION
     Dosage: 5+25; 1 TBL UJUTRO
     Route: 048
     Dates: start: 201502
  2. KLAVOCIN BID TABLETE 1 G [Suspect]
     Active Substance: AMOXICILLIN\CLAVULANIC ACID
     Indication: CHEST PAIN
     Dosage: 1 G; 2X1 TBL
     Route: 048
     Dates: start: 20160112, end: 20160112
  3. RANIX [Concomitant]
     Indication: CHEST PAIN
     Dosage: 150 MG; 2X1
     Route: 048
     Dates: start: 20160111

REACTIONS (3)
  - Abdominal pain [Recovered/Resolved]
  - Nausea [Recovered/Resolved]
  - Vomiting [Recovered/Resolved]

NARRATIVE: CASE EVENT DATE: 20160112
